FAERS Safety Report 15588087 (Version 2)
Quarter: 2019Q1

REPORT INFORMATION
  Report Type: Spontaneous
  Country: US (occurrence: US)
  Receive Date: 20181105
  Receipt Date: 20190326
  Transmission Date: 20190417
  Serious: No
  Sender: FDA-Public Use
  Company Number: US-ACTELION-A-US2018-180803

PATIENT
  Age: 37 Year
  Sex: Male
  Weight: 120.64 kg

DRUGS (2)
  1. SILDENAFIL CITRATE. [Concomitant]
     Active Substance: SILDENAFIL CITRATE
  2. TRACLEER [Suspect]
     Active Substance: BOSENTAN
     Indication: PULMONARY ARTERIAL HYPERTENSION
     Dosage: 125 MG, BID
     Route: 048

REACTIONS (4)
  - Fatigue [Unknown]
  - Chest discomfort [Unknown]
  - Product dose omission [Unknown]
  - Decreased activity [Unknown]

NARRATIVE: CASE EVENT DATE: 201810
